FAERS Safety Report 7426451-9 (Version None)
Quarter: 2011Q2

REPORT INFORMATION
  Report Type: 
  Country: None (occurrence: None)
  Receive Date: 20110413
  Receipt Date: 20110404
  Transmission Date: 20111010
  Serious: Yes (Hospitalization, Other)
  Sender: FDA-Public Use
  Company Number: 20109328

PATIENT
  Age: 20 Year
  Sex: Female

DRUGS (1)
  1. LIORESAL [Suspect]
     Indication: MUSCLE SPASTICITY
     Dosage: 900 MCG, DAILY, INTRATHECAL
     Route: 037

REACTIONS (5)
  - DURAL TEAR [None]
  - POST PROCEDURAL COMPLICATION [None]
  - INCISION SITE OEDEMA [None]
  - INTRACRANIAL HYPOTENSION [None]
  - HYPERTONIA [None]
